FAERS Safety Report 24853169 (Version 3)
Quarter: 2025Q1

REPORT INFORMATION
  Report Type: Report from Study
  Country: US (occurrence: US)
  Receive Date: 20250117
  Receipt Date: 20250219
  Transmission Date: 20250408
  Serious: Yes (Death)
  Sender: JOHNSON AND JOHNSON
  Company Number: US-JNJFOC-20250120637

PATIENT
  Age: 72 Year
  Sex: Female

DRUGS (5)
  1. SPRAVATO [Suspect]
     Active Substance: ESKETAMINE
     Indication: Depression
     Route: 045
     Dates: start: 20240718, end: 20240718
  2. SPRAVATO [Suspect]
     Active Substance: ESKETAMINE
     Route: 045
     Dates: start: 20240725, end: 20240725
  3. SPRAVATO [Suspect]
     Active Substance: ESKETAMINE
     Route: 045
     Dates: start: 20240730, end: 20240730
  4. SPRAVATO [Suspect]
     Active Substance: ESKETAMINE
     Route: 045
     Dates: start: 20240911, end: 20241029
  5. SPRAVATO [Suspect]
     Active Substance: ESKETAMINE
     Route: 045
     Dates: start: 20240716, end: 20240716

REACTIONS (10)
  - Myocardial infarction [Fatal]
  - Increased appetite [Unknown]
  - Morbid thoughts [Recovered/Resolved]
  - Anhedonia [Recovered/Resolved]
  - Asthenia [Recovered/Resolved]
  - Insomnia [Not Recovered/Not Resolved]
  - Disturbance in attention [Recovered/Resolved]
  - Dissociation [Unknown]
  - Off label use [Unknown]
  - Product dose omission issue [Unknown]

NARRATIVE: CASE EVENT DATE: 20240101
